FAERS Safety Report 6401742-9 (Version None)
Quarter: 2009Q4

REPORT INFORMATION
  Report Type: 
  Country: None (occurrence: None)
  Receive Date: 20091015
  Receipt Date: 20091006
  Transmission Date: 20100525
  Serious: Yes (Other)
  Sender: FDA-Public Use
  Company Number: US-ROCHE-661877

PATIENT
  Sex: Female

DRUGS (5)
  1. XELODA [Suspect]
     Route: 065
  2. HERCEPTIN [Suspect]
     Route: 065
  3. TAXOTERE [Suspect]
     Route: 065
  4. CARBOPLATIN [Suspect]
     Route: 065
  5. LAPATINIB [Suspect]
     Route: 065

REACTIONS (1)
  - MALIGNANT NEOPLASM PROGRESSION [None]
